FAERS Safety Report 13707920 (Version 4)
Quarter: 2017Q4

REPORT INFORMATION
  Report Type: Spontaneous
  Country: IL (occurrence: IL)
  Receive Date: 20170630
  Receipt Date: 20171218
  Transmission Date: 20180320
  Serious: Yes (Other)
  Sender: FDA-Public Use
  Company Number: IL-TEVA-781167ACC

PATIENT
  Age: 58 Year
  Sex: Female

DRUGS (1)
  1. ZOLEDRONIC ACID [Suspect]
     Active Substance: ZOLEDRONIC ACID
     Indication: OSTEOPOROSIS
     Route: 041

REACTIONS (8)
  - Autoinflammatory disease [Unknown]
  - Aromatase inhibition therapy [Unknown]
  - Condition aggravated [Unknown]
  - Erythema [Recovered/Resolved]
  - Crohn^s disease [Unknown]
  - Influenza like illness [Recovered/Resolved]
  - Arthralgia [Not Recovered/Not Resolved]
  - Tenderness [Unknown]
